FAERS Safety Report 10767387 (Version 1)
Quarter: 2015Q1

REPORT INFORMATION
  Report Type: Report from Study
  Country: AU (occurrence: AU)
  Receive Date: 20150205
  Receipt Date: 20150205
  Transmission Date: 20150721
  Serious: Yes (Hospitalization)
  Sender: FDA-Public Use
  Company Number: AU-MYLANLABS-2015M1003108

PATIENT

DRUGS (10)
  1. SEVOFLURANE. [Suspect]
     Active Substance: SEVOFLURANE
     Indication: COLECTOMY
     Route: 065
  2. MIDAZOLAM [Concomitant]
     Active Substance: MIDAZOLAM\MIDAZOLAM HYDROCHLORIDE
     Indication: COLECTOMY
     Route: 065
  3. FENTANYL. [Concomitant]
     Active Substance: FENTANYL
     Indication: COLECTOMY
     Route: 065
  4. CEFTRIAXONE. [Concomitant]
     Active Substance: CEFTRIAXONE
     Indication: COLECTOMY
     Route: 065
  5. PREDNISOLONE. [Suspect]
     Active Substance: PREDNISOLONE
     Dosage: 10MG
     Route: 065
  6. ISOFLURANE. [Suspect]
     Active Substance: ISOFLURANE
     Indication: ACCIDENTAL EXPOSURE TO PRODUCT
     Route: 065
  7. PROPOFOL. [Concomitant]
     Active Substance: PROPOFOL
     Indication: COLECTOMY
     Route: 065
  8. METRONIDAZOLE. [Concomitant]
     Active Substance: METRONIDAZOLE
     Indication: COLECTOMY
     Route: 065
  9. KETAMINE [Concomitant]
     Active Substance: KETAMINE
     Indication: COLECTOMY
     Route: 065
  10. CISATRACURIUM BESILATE [Concomitant]
     Active Substance: CISATRACURIUM BESYLATE
     Indication: COLECTOMY
     Route: 065

REACTIONS (3)
  - Mental disorder [Unknown]
  - Hepatitis [Recovering/Resolving]
  - Drug-induced liver injury [Recovering/Resolving]
